FAERS Safety Report 5522909-8 (Version None)
Quarter: 2007Q4

REPORT INFORMATION
  Report Type: 
  Country: None (occurrence: None)
  Receive Date: 20071116
  Receipt Date: 20071031
  Transmission Date: 20080405
  Serious: Yes (Other)
  Sender: FDA-Public Use
  Company Number: STI-2007-01854

PATIENT
  Age: 70 Year
  Sex: Female

DRUGS (8)
  1. HYDROCORTISONE [Suspect]
     Indication: ADDISON'S DISEASE
     Dosage: 5 MG, DAILY, ORAL
     Route: 048
     Dates: start: 20070101, end: 20071001
  2. SYNTHROID [Concomitant]
  3. METOPROLOL TARTRATE [Concomitant]
  4. ZETIA [Concomitant]
  5. FENOFIBRATE [Concomitant]
  6. NEXIUM [Concomitant]
  7. VITAMIN E [Concomitant]
  8. CALCIUM (CALCIUM) [Concomitant]

REACTIONS (5)
  - ASTHENIA [None]
  - DRUG INEFFECTIVE [None]
  - DYSPNOEA [None]
  - NAUSEA [None]
  - PHARMACEUTICAL PRODUCT COMPLAINT [None]
